FAERS Safety Report 14430600 (Version 1)
Quarter: 2018Q1

REPORT INFORMATION
  Report Type: Spontaneous
  Country: US (occurrence: US)
  Receive Date: 20180124
  Receipt Date: 20180124
  Transmission Date: 20180509
  Serious: No
  Sender: FDA-Public Use
  Company Number: US-B.I. PHARMACEUTICALS,INC./RIDGEFIELD-2018-BI-003257

PATIENT
  Sex: Male

DRUGS (8)
  1. AMLODIPINE [Concomitant]
     Active Substance: AMLODIPINE BESYLATE
     Indication: PRODUCT USED FOR UNKNOWN INDICATION
     Dosage: DAILY;  FORM STRENGTH: 5 MG; FORMULATION: TABLET
     Route: 048
  2. PRAVASTATIN. [Concomitant]
     Active Substance: PRAVASTATIN
     Indication: PRODUCT USED FOR UNKNOWN INDICATION
     Dosage: DAILY;  FORM STRENGTH: 20 MG; FORMULATION: TABLET
     Route: 048
  3. CHLORDIAZEPOXIDE. [Concomitant]
     Active Substance: CHLORDIAZEPOXIDE
     Indication: PRODUCT USED FOR UNKNOWN INDICATION
     Dosage: TWICE DAILY AS NEEDED;  FORM STRENGTH: 10 MG; FORMULATION: CAPSULE
     Route: 048
  4. PRADAXA [Suspect]
     Active Substance: DABIGATRAN ETEXILATE MESYLATE
     Indication: ATRIAL FIBRILLATION
     Dosage: BID;  FORM STRENGTH: 150 MG; FORMULATION: CAPSULE
     Route: 048
     Dates: start: 20171206
  5. ATENOLOL. [Concomitant]
     Active Substance: ATENOLOL
     Indication: PRODUCT USED FOR UNKNOWN INDICATION
     Dosage: 1/2 TABLET ONCE DAILY;  FORM STRENGTH: 50 MG; FORMULATION: TABLET
     Route: 048
  6. SOTALOL. [Concomitant]
     Active Substance: SOTALOL
     Indication: PRODUCT USED FOR UNKNOWN INDICATION
     Dosage: TWICE DAILY;  FORM STRENGTH: 160 MG; FORMULATION: TABLET
     Route: 048
  7. ASPIRIN. [Concomitant]
     Active Substance: ASPIRIN
     Indication: PRODUCT USED FOR UNKNOWN INDICATION
     Dosage: DAILY;  FORM STRENGTH: 81 MG; FORMULATION: TABLET
     Route: 048
  8. ALLOPURINOL. [Concomitant]
     Active Substance: ALLOPURINOL
     Indication: PRODUCT USED FOR UNKNOWN INDICATION
     Dosage: DAILY;  FORM STRENGTH: 100 MG; FORMULATION: TABLET
     Route: 048

REACTIONS (2)
  - Myalgia [Not Recovered/Not Resolved]
  - Fatigue [Not Recovered/Not Resolved]
